FAERS Safety Report 5766654-2 (Version None)
Quarter: 2008Q2

REPORT INFORMATION
  Report Type: 
  Country: None (occurrence: None)
  Receive Date: 20080610
  Receipt Date: 20080610
  Transmission Date: 20081010
  Serious: Yes (Hospitalization)
  Sender: FDA-Public Use
  Company Number: None

PATIENT
  Age: 45 Year
  Sex: Female

DRUGS (1)
  1. PHENYTOIN [Suspect]
     Indication: CONVULSION
     Dosage: 50MG BID PO LONG TERM
     Route: 048

REACTIONS (3)
  - COUGH [None]
  - DECREASED APPETITE [None]
  - URINE ODOUR ABNORMAL [None]
